FAERS Safety Report 19098189 (Version 2)
Quarter: 2024Q2

REPORT INFORMATION
  Report Type: Other
  Country: MX (occurrence: None)
  Receive Date: 20210406
  Receipt Date: 20240511
  Transmission Date: 20240716
  Serious: Yes (Hospitalization, Disabling)
  Sender: FDA-Public Use
  Company Number: MX-ROCHE-2801547

PATIENT
  Sex: Female

DRUGS (2)
  1. TOCILIZUMAB [Suspect]
     Active Substance: TOCILIZUMAB
     Indication: Rheumatoid arthritis
     Dosage: TOCILIZUMAB VIAL OF 200MG/10ML AND 80 MG
     Route: 042
     Dates: start: 20141201
  2. CELEBREX [Concomitant]
     Active Substance: CELECOXIB
     Dosage: FREQUENCY WAS NOT REPORTED

REACTIONS (5)
  - Arthropathy [Unknown]
  - Drug ineffective [Unknown]
  - Pain in extremity [Unknown]
  - Arthritis infective [Unknown]
  - Arthralgia [Unknown]
